FAERS Safety Report 19035822 (Version 6)
Quarter: 2021Q2

REPORT INFORMATION
  Report Type: Report from Study
  Country: US (occurrence: US)
  Receive Date: 20210321
  Receipt Date: 20210527
  Transmission Date: 20210717
  Serious: Yes (Other)
  Sender: FDA-Public Use
  Company Number: US-TEVA-2021-US-1892090

PATIENT
  Age: 61 Year
  Sex: Male

DRUGS (5)
  1. CLOZAPINE TEVA [Suspect]
     Active Substance: CLOZAPINE
     Dosage: 50 MG HS
     Route: 065
  2. CLOZAPINE TEVA [Suspect]
     Active Substance: CLOZAPINE
     Route: 048
  3. CLOZAPINE TEVA [Suspect]
     Active Substance: CLOZAPINE
     Route: 065
     Dates: end: 20210310
  4. CLOZAPINE TEVA [Suspect]
     Active Substance: CLOZAPINE
     Route: 065
     Dates: end: 20210407
  5. CLOZAPINE TEVA [Suspect]
     Active Substance: CLOZAPINE
     Dosage: 200 MG AT HS
     Route: 065

REACTIONS (4)
  - Neutrophil count abnormal [Unknown]
  - Neutropenia [Recovered/Resolved with Sequelae]
  - Granulocytopenia [Unknown]
  - White blood cell count decreased [Recovered/Resolved]

NARRATIVE: CASE EVENT DATE: 20210310
